FAERS Safety Report 16041597 (Version 6)
Quarter: 2020Q3

REPORT INFORMATION
  Report Type: Spontaneous
  Country: US (occurrence: US)
  Receive Date: 20190306
  Receipt Date: 20200811
  Transmission Date: 20201102
  Serious: Yes (Other)
  Sender: FDA-Public Use
  Company Number: US-PFIZER INC-2019090533

PATIENT
  Age: 59 Year
  Sex: Female

DRUGS (1)
  1. XELJANZ [Suspect]
     Active Substance: TOFACITINIB CITRATE
     Indication: RHEUMATOID ARTHRITIS
     Dosage: 5 MG, UNK

REACTIONS (15)
  - Arthralgia [Not Recovered/Not Resolved]
  - Infection [Unknown]
  - Erythema [Unknown]
  - Intentional dose omission [Unknown]
  - Pruritus [Unknown]
  - Osteoarthritis [Unknown]
  - Arthropathy [Unknown]
  - Neck pain [Not Recovered/Not Resolved]
  - Diverticulitis [Unknown]
  - Cough [Unknown]
  - Loss of personal independence in daily activities [Unknown]
  - Gait disturbance [Unknown]
  - Hypersensitivity [Unknown]
  - Sensitivity to weather change [Unknown]
  - Pain in extremity [Not Recovered/Not Resolved]
